FAERS Safety Report 13512400 (Version 2)
Quarter: 2017Q2

REPORT INFORMATION
  Report Type: Spontaneous
  Country: IT (occurrence: IT)
  Receive Date: 20170504
  Receipt Date: 20170511
  Transmission Date: 20170830
  Serious: Yes (Disabling)
  Sender: FDA-Public Use
  Company Number: IT-INCYTE CORPORATION-2017IN003429

PATIENT
  Age: 56 Year
  Sex: Male

DRUGS (7)
  1. MEDROL [Concomitant]
     Active Substance: METHYLPREDNISOLONE
     Indication: PSORIATIC ARTHROPATHY
     Dosage: 4 MG, QD
     Route: 065
     Dates: start: 2011
  2. METHOTREXATE. [Concomitant]
     Active Substance: METHOTREXATE
     Route: 065
  3. METHOTREXATE. [Concomitant]
     Active Substance: METHOTREXATE
     Indication: PRODUCT USED FOR UNKNOWN INDICATION
     Route: 065
  4. ASA [Concomitant]
     Active Substance: ASPIRIN
     Indication: ARTERIOSCLEROSIS
     Dosage: 100 MG, UNK
     Route: 048
     Dates: start: 20110101, end: 20170202
  5. JAKAVI [Suspect]
     Active Substance: RUXOLITINIB
     Indication: MYELOFIBROSIS
     Dosage: 30 MG, QD
     Route: 048
     Dates: start: 201504
  6. MEDROL [Concomitant]
     Active Substance: METHYLPREDNISOLONE
     Dosage: 4 MG, QD
     Route: 048
     Dates: start: 20110101, end: 20170202
  7. ASA [Concomitant]
     Active Substance: ASPIRIN
     Indication: HYPERTENSION

REACTIONS (5)
  - Second primary malignancy [Recovering/Resolving]
  - Metastases to lymph nodes [Recovering/Resolving]
  - Squamous cell carcinoma of skin [Recovering/Resolving]
  - Lymphadenopathy [Unknown]
  - Nerve injury [Unknown]

NARRATIVE: CASE EVENT DATE: 2015
